FAERS Safety Report 18490420 (Version 1)
Quarter: 2020Q4

REPORT INFORMATION
  Report Type: Spontaneous
  Country: ES (occurrence: ES)
  Receive Date: 20201111
  Receipt Date: 20201111
  Transmission Date: 20210114
  Serious: Yes (Life-Threatening)
  Sender: FDA-Public Use
  Company Number: ES-TEVA-2020-ES-1846575

PATIENT
  Age: 58 Year
  Sex: Male

DRUGS (2)
  1. ENALAPRIL (2142A) [Concomitant]
     Active Substance: ENALAPRIL
  2. NAPROXENO (2002A) [Suspect]
     Active Substance: NAPROXEN
     Indication: ARTHRALGIA
     Route: 048
     Dates: start: 20200322, end: 20200322

REACTIONS (1)
  - Anaphylactic shock [Recovered/Resolved]

NARRATIVE: CASE EVENT DATE: 20200322
